FAERS Safety Report 9094900 (Version 1)
Quarter: 2013Q1

REPORT INFORMATION
  Report Type: Spontaneous
  Country: US (occurrence: None)
  Receive Date: 20130214
  Receipt Date: 20130214
  Transmission Date: 20140127
  Serious: Yes (Hospitalization)
  Sender: FDA-Public Use
  Company Number: None

PATIENT
  Age: 61 Year
  Sex: Male
  Weight: 49.3 kg

DRUGS (1)
  1. DALFAMPRIDINE [Suspect]
     Indication: MULTIPLE SCLEROSIS

REACTIONS (5)
  - Convulsion [None]
  - Fall [None]
  - Lethargy [None]
  - Disorientation [None]
  - Muscle spasms [None]
